FAERS Safety Report 8130164 (Version 7)
Quarter: 2014Q1

REPORT INFORMATION
  Report Type: Report from Study
  Country: AU (occurrence: AU)
  Receive Date: 20110912
  Receipt Date: 20140318
  Transmission Date: 20141002
  Serious: Yes (Death, Life-Threatening, Hospitalization)
  Sender: FDA-Public Use
  Company Number: AU-JNJFOC-20110805068

PATIENT
  Age: 49 Year
  Sex: Male
  Weight: 59.1 kg

DRUGS (39)
  1. ABIRATERONE ACETATE [Suspect]
     Route: 048
  2. ABIRATERONE ACETATE [Suspect]
     Indication: PROSTATE CANCER METASTATIC
     Route: 048
     Dates: start: 20110725, end: 20110816
  3. PREDNISONE [Suspect]
     Indication: PROSTATE CANCER METASTATIC
     Route: 065
     Dates: start: 20110725, end: 20110817
  4. LEUPRORELIN [Concomitant]
     Indication: HORMONE THERAPY
     Route: 065
     Dates: start: 20081215
  5. MORPHINE [Concomitant]
     Indication: PATHOLOGICAL FRACTURE
     Route: 065
     Dates: start: 20110804, end: 20110804
  6. DEXAMETHASONE [Concomitant]
     Indication: PATHOLOGICAL FRACTURE
     Route: 065
     Dates: start: 20110812, end: 20110816
  7. DEXAMETHASONE [Concomitant]
     Indication: PATHOLOGICAL FRACTURE
     Route: 065
     Dates: start: 20110810, end: 20110811
  8. DEXAMETHASONE [Concomitant]
     Indication: PATHOLOGICAL FRACTURE
     Route: 065
     Dates: start: 20110804, end: 20110809
  9. RED BLOOD CELLS [Concomitant]
     Indication: ANAEMIA
     Route: 065
     Dates: start: 20110805
  10. METOCLOPRAMIDE [Concomitant]
     Indication: GASTROOESOPHAGEAL REFLUX DISEASE
     Route: 065
     Dates: start: 20110812
  11. METOCLOPRAMIDE [Concomitant]
     Indication: VOMITING
     Route: 065
     Dates: start: 20110812
  12. METOCLOPRAMIDE [Concomitant]
     Indication: NAUSEA
     Route: 065
     Dates: start: 20110812
  13. TEMAZEPAM [Concomitant]
     Indication: INSOMNIA
     Route: 065
     Dates: start: 20110804, end: 20110811
  14. SODIUM BICARBONATE [Concomitant]
     Indication: DENTAL DISORDER PROPHYLAXIS
     Route: 048
     Dates: start: 20110805, end: 20110812
  15. SORBOLENE CREAM WITH 10% GLYCERINE [Concomitant]
     Indication: THERAPEUTIC PROCEDURE
     Route: 065
     Dates: start: 20110805, end: 20110812
  16. MOVICOL [Concomitant]
     Indication: CONSTIPATION
     Route: 065
     Dates: start: 20110805, end: 20110809
  17. MOVICOL [Concomitant]
     Indication: CONSTIPATION
     Route: 065
     Dates: start: 20110811, end: 20110812
  18. RABEPRAZOLE [Concomitant]
     Indication: GASTROOESOPHAGEAL REFLUX DISEASE
     Route: 065
     Dates: start: 20110805, end: 20110812
  19. STEMETIL [Concomitant]
     Indication: NAUSEA
     Route: 065
     Dates: start: 20110807, end: 20110816
  20. AGAROL LAXATIVE [Concomitant]
     Indication: CONSTIPATION
     Route: 065
     Dates: start: 20110804, end: 20110804
  21. AGAROL LAXATIVE [Concomitant]
     Indication: CONSTIPATION
     Route: 065
     Dates: start: 20110807, end: 20110807
  22. XYLOCAINE [Concomitant]
     Indication: ABDOMINAL PAIN UPPER
     Route: 065
     Dates: start: 20110805, end: 20110808
  23. XYLOCAINE [Concomitant]
     Indication: OESOPHAGEAL PAIN
     Route: 065
     Dates: start: 20110805, end: 20110808
  24. TAMSULOSIN [Concomitant]
     Indication: POLLAKIURIA
     Route: 065
     Dates: start: 20110805, end: 20110812
  25. COLOXYL + SENNA [Concomitant]
     Indication: CONSTIPATION
     Route: 065
     Dates: start: 20110804, end: 20110810
  26. COLOXYL + SENNA [Concomitant]
     Indication: CONSTIPATION
     Route: 065
     Dates: start: 20110811, end: 20110812
  27. CALCITRIOL [Concomitant]
     Indication: HYPOCALCAEMIA
     Route: 065
     Dates: start: 20110804, end: 20110812
  28. CALTRATE [Concomitant]
     Indication: HYPOCALCAEMIA
     Route: 065
     Dates: start: 20110804, end: 20110811
  29. FENTANYL [Concomitant]
     Indication: PAIN
     Route: 065
     Dates: start: 2011, end: 20110817
  30. PARACETAMOL [Concomitant]
     Indication: SPINAL FRACTURE
     Route: 065
     Dates: start: 20110804, end: 20110812
  31. MORPHINE SULFATE [Concomitant]
     Indication: SPINAL FRACTURE
     Route: 065
     Dates: start: 20110810, end: 20110812
  32. MORPHINE SULFATE [Concomitant]
     Indication: SPINAL FRACTURE
     Route: 065
     Dates: start: 20110804, end: 20110810
  33. CLEXANE [Concomitant]
     Indication: THROMBOSIS
     Route: 065
     Dates: start: 20110807, end: 20110816
  34. NYSTATIN [Concomitant]
     Indication: OROPHARYNGEAL PAIN
     Route: 065
     Dates: start: 20110810, end: 20110812
  35. NYSTATIN [Concomitant]
     Indication: OROPHARYNGEAL PAIN
     Route: 065
     Dates: start: 20110816, end: 20110817
  36. NYSTATIN [Concomitant]
     Indication: ABDOMINAL PAIN UPPER
     Route: 065
     Dates: start: 20110816, end: 20110817
  37. NYSTATIN [Concomitant]
     Indication: ABDOMINAL PAIN UPPER
     Route: 065
     Dates: start: 20110810, end: 20110812
  38. NYSTATIN [Concomitant]
     Indication: OESOPHAGEAL PAIN
     Route: 065
     Dates: start: 20110816, end: 20110817
  39. NYSTATIN [Concomitant]
     Indication: OESOPHAGEAL PAIN
     Route: 065
     Dates: start: 20110810, end: 20110812

REACTIONS (2)
  - Lung infection [Fatal]
  - Spinal fracture [Not Recovered/Not Resolved]
